FAERS Safety Report 7389192-2 (Version None)
Quarter: 2011Q1

REPORT INFORMATION
  Report Type: 
  Country: None (occurrence: None)
  Receive Date: 20110324
  Receipt Date: 20110317
  Transmission Date: 20110831
  Serious: Yes (Other)
  Sender: FDA-Public Use
  Company Number: USA/USA/11/0017769

PATIENT
  Age: 50 Year
  Sex: Female

DRUGS (1)
  1. CIPROFLOXACIN (CIPROFLOXACIN HYDROCHLORIDE) [Suspect]
     Indication: URINARY TRACT INFECTION

REACTIONS (8)
  - NAUSEA [None]
  - OESOPHAGEAL CANDIDIASIS [None]
  - LEUKOPENIA [None]
  - IDIOSYNCRATIC DRUG REACTION [None]
  - THROMBOCYTOPENIA [None]
  - ABDOMINAL PAIN UPPER [None]
  - IMMUNOSUPPRESSION [None]
  - BONE MARROW FAILURE [None]
